FAERS Safety Report 10507642 (Version 1)
Quarter: 2014Q4

REPORT INFORMATION
  Report Type: Spontaneous
  Country: US (occurrence: None)
  Receive Date: 20141008
  Receipt Date: 20141008
  Transmission Date: 20150528
  Serious: Yes (Hospitalization)
  Sender: FDA-Public Use
  Company Number: None

PATIENT
  Age: 65 Year
  Sex: Male
  Weight: 80.88 kg

DRUGS (2)
  1. LITHIUM [Suspect]
     Active Substance: LITHIUM CARBONATE
     Indication: BIPOLAR DISORDER
     Route: 048
     Dates: start: 20100315, end: 20140719
  2. LITHIUM [Suspect]
     Active Substance: LITHIUM CARBONATE
     Indication: MANIA
     Route: 048
     Dates: start: 20100315, end: 20140719

REACTIONS (4)
  - Toxicity to various agents [None]
  - Mental status changes [None]
  - Drug level above therapeutic [None]
  - Delirium [None]

NARRATIVE: CASE EVENT DATE: 20140719
